FAERS Safety Report 8201237-6 (Version None)
Quarter: 2012Q1

REPORT INFORMATION
  Report Type: 
  Country: None (occurrence: None)
  Receive Date: 20120307
  Receipt Date: 20120221
  Transmission Date: 20120608
  Serious: Yes (Hospitalization)
  Sender: FDA-Public Use
  Company Number: 2012HGS-003309

PATIENT
  Age: 40 Year

DRUGS (8)
  1. CHEMOTHERAPY (CHEMOTHERAPEUTICS) (NULL) [Concomitant]
  2. PAIN KILLERS (PAIN MEDICATION) [Concomitant]
  3. BENLYSTA [Suspect]
     Indication: SYSTEMIC LUPUS ERYTHEMATOSUS
     Dosage: INTRAVENOUS (NOT OTHERWISE SPECIFICED)
     Route: 042
     Dates: start: 20111026
  4. SLEEPING PILLS (SLEEPING MEDICATION) [Concomitant]
  5. SALAZOPYRIN (SULFASALAZINE) (SULFASALAZINE) [Concomitant]
  6. METHOTREXATE [Concomitant]
  7. CORTISONE (CORTISONE) (CORTISONE) [Concomitant]
  8. STEROIDS (STEROID) [Concomitant]

REACTIONS (24)
  - PARAESTHESIA ORAL [None]
  - HYPERTENSION [None]
  - FATIGUE [None]
  - FEELING ABNORMAL [None]
  - INSOMNIA [None]
  - NASAL DISCOMFORT [None]
  - PARAESTHESIA [None]
  - SCREAMING [None]
  - HYPERSOMNIA [None]
  - PAIN [None]
  - RASH PRURITIC [None]
  - ARTHRALGIA [None]
  - MOUTH ULCERATION [None]
  - TENDONITIS [None]
  - PYREXIA [None]
  - DRUG HYPERSENSITIVITY [None]
  - TENDON DISORDER [None]
  - NAUSEA [None]
  - DIZZINESS [None]
  - HYPOTENSION [None]
  - HANGOVER [None]
  - LIP SWELLING [None]
  - AMNESIA [None]
  - INFLUENZA [None]
